FAERS Safety Report 10951268 (Version 1)
Quarter: 2015Q1

REPORT INFORMATION
  Report Type: Spontaneous
  Country: US (occurrence: None)
  Receive Date: 20150226
  Receipt Date: 20150226
  Transmission Date: 20150721
  Serious: Yes (Other)
  Sender: FDA-Public Use
  Company Number: TPA2012A09134

PATIENT
  Age: 66 Year
  Sex: Female
  Weight: 52.15 kg

DRUGS (4)
  1. PREVACID [Suspect]
     Active Substance: LANSOPRAZOLE
     Indication: GASTRITIS
     Dosage: 1 IN 1 D
     Dates: start: 2005, end: 201210
  2. NEURONTIN [Suspect]
     Active Substance: GABAPENTIN
     Indication: SEIZURE
     Dosage: 3 IN 1 D
     Route: 048
  3. KEPPRA [Suspect]
     Active Substance: LEVETIRACETAM
     Indication: SEIZURE
     Dosage: 2 IN 1 D
  4. URSODIOL. [Concomitant]
     Active Substance: URSODIOL

REACTIONS (6)
  - Confusional state [None]
  - Irritability [None]
  - Amnesia [None]
  - Seizure [None]
  - Blood test abnormal [None]
  - Overdose [None]

NARRATIVE: CASE EVENT DATE: 2005
